FAERS Safety Report 9722481 (Version 4)
Quarter: 2014Q2

REPORT INFORMATION
  Report Type: Spontaneous
  Country: CN (occurrence: CN)
  Receive Date: 20131202
  Receipt Date: 20140505
  Transmission Date: 20141212
  Serious: Yes (Other)
  Sender: FDA-Public Use
  Company Number: CN-MILLENNIUM PHARMACEUTICALS, INC.-2013JNJ000739

PATIENT
  Sex: 0

DRUGS (1)
  1. VELCADE [Suspect]
     Indication: PLASMA CELL MYELOMA
     Dosage: 3.5 MG, UNK
     Route: 065
     Dates: start: 20130518

REACTIONS (6)
  - Suspected counterfeit product [Unknown]
  - Medication error [Unknown]
  - Bone pain [Unknown]
  - Malaise [Unknown]
  - Decreased appetite [Unknown]
  - Face oedema [Unknown]
